FAERS Safety Report 24695224 (Version 1)
Quarter: 2024Q4

REPORT INFORMATION
  Report Type: Spontaneous
  Country: US (occurrence: None)
  Receive Date: 20241203
  Receipt Date: 20241203
  Transmission Date: 20250115
  Serious: No
  Sender: Public
  Company Number: None

PATIENT
  Age: 72 Year
  Sex: Male

DRUGS (1)
  1. XDEMVY [Suspect]
     Active Substance: LOTILANER
     Indication: Acariasis
     Dosage: 1 GTT DROP(S)  TWICE A DAY OPHTHALMIC
     Route: 047

REACTIONS (2)
  - Sinus pain [None]
  - Pain [None]

NARRATIVE: CASE EVENT DATE: 20241010
